FAERS Safety Report 8913046 (Version 1)
Quarter: 2012Q4

REPORT INFORMATION
  Report Type: Spontaneous
  Country: US (occurrence: None)
  Receive Date: 20121113
  Receipt Date: 20121113
  Transmission Date: 20130627
  Serious: Yes (Hospitalization)
  Sender: FDA-Public Use
  Company Number: 2012SGN00491

PATIENT
  Age: 32 Year
  Sex: Male

DRUGS (2)
  1. ADCETRIS (BRENTUXIMAB VEDOTIN) INJECTION [Suspect]
     Indication: HODGKIN^S LYMPHOMA
  2. INSULIN (INSULIN) [Concomitant]

REACTIONS (3)
  - Blood glucose increased [None]
  - Metabolic acidosis [None]
  - Renal failure [None]
